FAERS Safety Report 8359838-0 (Version None)
Quarter: 2012Q2

REPORT INFORMATION
  Report Type: 
  Country: None (occurrence: None)
  Receive Date: 20120515
  Receipt Date: 20120503
  Transmission Date: 20120825
  Serious: Yes (Hospitalization)
  Sender: FDA-Public Use
  Company Number: US-JNJFOC-20120506915

PATIENT
  Age: 44 Year
  Sex: Female

DRUGS (10)
  1. INVEGA SUSTENNA [Suspect]
     Route: 030
     Dates: start: 20120501
  2. AN UNKNOWN MEDICATION [Concomitant]
     Route: 065
  3. KLONOPIN [Concomitant]
     Route: 048
  4. GABAPENTIN [Concomitant]
     Route: 048
  5. VISTARIL [Concomitant]
     Route: 048
  6. LIPITOR [Concomitant]
     Route: 048
  7. INVEGA SUSTENNA [Suspect]
     Indication: SCHIZOAFFECTIVE DISORDER
     Route: 030
  8. RISPERDAL [Concomitant]
     Indication: SCHIZOAFFECTIVE DISORDER
     Route: 048
  9. METFORMIN HCL [Concomitant]
     Indication: DIABETES MELLITUS
     Route: 048
  10. CLIMARA [Concomitant]
     Route: 065

REACTIONS (2)
  - BLOOD GLUCOSE INCREASED [None]
  - ADVERSE EVENT [None]
